FAERS Safety Report 4299187-3 (Version None)
Quarter: 2004Q1

REPORT INFORMATION
  Report Type: 
  Country: None (occurrence: None)
  Receive Date: 20040217
  Receipt Date: 20040217
  Transmission Date: 20041129
  Serious: Yes (Other)
  Sender: FDA-Public Use
  Company Number: None

PATIENT
  Sex: Male
  Weight: 29.4838 kg

DRUGS (1)
  1. MOTRIN [Suspect]
     Indication: BODY TEMPERATURE INCREASED
     Dosage: ORAL
     Route: 048
     Dates: start: 20040201, end: 20040201

REACTIONS (1)
  - OEDEMA [None]
